FAERS Safety Report 10144694 (Version 1)
Quarter: 2014Q2

REPORT INFORMATION
  Report Type: Spontaneous
  Country: US (occurrence: US)
  Receive Date: 20140430
  Receipt Date: 20140430
  Transmission Date: 20141212
  Serious: No
  Sender: FDA-Public Use
  Company Number: US-SANOFI-AVENTIS-2013SA084143

PATIENT
  Age: 60 Year
  Sex: Male

DRUGS (1)
  1. ENOXAPARIN SODIUM - WINTHROP [Suspect]
     Dosage: TAKEN FROM: ABOUT A MONTH AGO
     Route: 065

REACTIONS (2)
  - Injection site discomfort [Unknown]
  - Wrong technique in drug usage process [Unknown]
